FAERS Safety Report 18263525 (Version 1)
Quarter: 2020Q3

REPORT INFORMATION
  Report Type: Spontaneous
  Country: US (occurrence: US)
  Receive Date: 20200914
  Receipt Date: 20200914
  Transmission Date: 20201103
  Serious: No
  Sender: FDA-Public Use
  Company Number: US-MYLANLABS-2020M1076623

PATIENT
  Sex: Female
  Weight: 82 kg

DRUGS (2)
  1. XULANE [Suspect]
     Active Substance: ETHINYL ESTRADIOL\NORELGESTROMIN
     Indication: MENSTRUATION IRREGULAR
     Dosage: ONCE/ WEEK/ 150/35 MCG PER DAY
     Route: 062
  2. XULANE [Suspect]
     Active Substance: ETHINYL ESTRADIOL\NORELGESTROMIN
     Indication: CONTRACEPTION

REACTIONS (4)
  - Drug ineffective for unapproved indication [Unknown]
  - Product packaging quantity issue [Unknown]
  - Off label use [Unknown]
  - Product label issue [Unknown]
